FAERS Safety Report 6695376-9 (Version None)
Quarter: 2010Q2

REPORT INFORMATION
  Report Type: 
  Country: None (occurrence: None)
  Receive Date: 20100423
  Receipt Date: 20100423
  Transmission Date: 20101027
  Serious: Yes (Hospitalization)
  Sender: FDA-Public Use
  Company Number: None

PATIENT
  Age: 63 Year
  Sex: Male
  Weight: 70 kg

DRUGS (9)
  1. METFORMIN HCL [Suspect]
     Indication: DIABETES MELLITUS
     Dosage: 1000 BID PO ; RECENT
     Route: 048
  2. LOVENOX [Concomitant]
  3. PERCOCET [Concomitant]
  4. ASPIRIN [Concomitant]
  5. DULCOLAX [Concomitant]
  6. LISINOPRIL [Concomitant]
  7. METOPROLOL TARTRATE [Concomitant]
  8. FLAGYL [Concomitant]
  9. CIPRO [Concomitant]

REACTIONS (14)
  - BACTERAEMIA [None]
  - COAGULOPATHY [None]
  - DYSPNOEA [None]
  - ELECTROMECHANICAL DISSOCIATION [None]
  - FEELING ABNORMAL [None]
  - GANGRENE [None]
  - HEPATIC ISCHAEMIA [None]
  - INCORRECT DOSE ADMINISTERED [None]
  - LACTIC ACIDOSIS [None]
  - LEG AMPUTATION [None]
  - MULTI-ORGAN FAILURE [None]
  - OSTEOMYELITIS [None]
  - RESPIRATORY FAILURE [None]
  - SEPTIC SHOCK [None]
